FAERS Safety Report 9587521 (Version 1)
Quarter: 2013Q4

REPORT INFORMATION
  Report Type: Spontaneous
  Country: US (occurrence: US)
  Receive Date: 20131003
  Receipt Date: 20131003
  Transmission Date: 20140711
  Serious: Yes (Other)
  Sender: FDA-Public Use
  Company Number: US-TEVA-435784USA

PATIENT
  Age: 56 Year
  Sex: Female

DRUGS (5)
  1. RIBAVIRIN [Suspect]
     Indication: CHRONIC HEPATITIS C
     Dosage: 1200MG DAILY
     Route: 065
  2. PEGINTERFERON ALFA-2A [Suspect]
     Indication: CHRONIC HEPATITIS C
     Dosage: 180 MICROG WEEKLY
     Route: 058
  3. TELAPREVIR [Suspect]
     Indication: CHRONIC HEPATITIS C
     Dosage: 2250MG DAILY
     Route: 065
  4. METFORMIN [Concomitant]
     Indication: HEPATIC STEATOSIS
     Route: 065
  5. IBUPROFEN [Concomitant]
     Indication: CARPAL TUNNEL SYNDROME
     Route: 065

REACTIONS (5)
  - Suicidal ideation [Unknown]
  - Pancytopenia [Unknown]
  - Scleritis [Unknown]
  - Depression [Recovered/Resolved]
  - Anaemia [Recovering/Resolving]
